FAERS Safety Report 7427957-9 (Version None)
Quarter: 2011Q2

REPORT INFORMATION
  Report Type: 
  Country: None (occurrence: None)
  Receive Date: 20110421
  Receipt Date: 20110321
  Transmission Date: 20111010
  Serious: Yes (Hospitalization, Other)
  Sender: FDA-Public Use
  Company Number: US-BAYER-2010-001225

PATIENT
  Sex: Female
  Weight: 83.9 kg

DRUGS (5)
  1. OCELLA [Suspect]
     Dosage: UNK, QD
     Route: 048
     Dates: start: 20090101
  2. YASMIN [Suspect]
     Indication: ORAL CONTRACEPTION
     Dosage: UNK UNK, QD
     Route: 048
     Dates: start: 20030101, end: 20050101
  3. OCELLA [Suspect]
     Dosage: UNK UNK, QD
     Route: 048
     Dates: start: 20030101, end: 20050101
  4. NSAID'S [Concomitant]
     Dosage: UNK
     Dates: start: 20010101, end: 20110101
  5. YASMIN [Suspect]
     Dosage: UNK, QD
     Route: 048
     Dates: start: 20090101

REACTIONS (1)
  - GALLBLADDER DISORDER [None]
